FAERS Safety Report 9859321 (Version 1)
Quarter: 2014Q1

REPORT INFORMATION
  Report Type: Spontaneous
  Country: AU (occurrence: None)
  Receive Date: 20140128
  Receipt Date: 20140128
  Transmission Date: 20141002
  Serious: Yes (Death)
  Sender: FDA-Public Use
  Company Number: AUR-APL-2014-00550

PATIENT
  Age: 25 Year
  Sex: Male

DRUGS (9)
  1. OLANZAPINE (OLANZAPINE) [Suspect]
     Indication: PRODUCT USED FOR UNKNOWN INDICATION
     Dosage: UNKNOWN
  2. DULOXETINE (DULOXETINE) (DULOXETINE) [Suspect]
     Dosage: UNKNOWN
  3. OXAZEPAM (OXAZEPAM) [Suspect]
     Indication: PRODUCT USED FOR UNKNOWN INDICATION
     Dosage: UNKNOWN
  4. BUPRENORPHINE (BUPRENORPHINE) [Suspect]
     Indication: PRODUCT USED FOR UNKNOWN INDICATION
     Dosage: UNKNOWN
  5. OLANZAPINE (OLANZAPINE) [Concomitant]
  6. DULOXETINE (DULOXETINE) (DULOXETINE) [Concomitant]
  7. OXAZEPAM (OXAZEPAM) [Concomitant]
  8. BUPRENORPHINE [Concomitant]
  9. CLONAZEPAM (CLONAZEPAM) (CLONAZEPAM) [Concomitant]

REACTIONS (3)
  - Toxicity to various agents [None]
  - Pulmonary oedema [None]
  - Pulmonary congestion [None]
